FAERS Safety Report 5804414-4 (Version None)
Quarter: 2008Q3

REPORT INFORMATION
  Report Type: 
  Country: None (occurrence: None)
  Receive Date: 20080702
  Receipt Date: 20071009
  Transmission Date: 20090109
  Serious: Yes (Other)
  Sender: FDA-Public Use
  Company Number: US-WYE-H00645807

PATIENT
  Age: 66 Year
  Sex: Female
  Weight: 65.83 kg

DRUGS (2)
  1. ADVIL [Suspect]
     Indication: INTERVERTEBRAL DISC PROTRUSION
     Dosage: 1 TABLET 1X PER 1 DAY, ORAL
     Route: 048
     Dates: start: 20071007, end: 20071007
  2. THYROID TAB [Concomitant]

REACTIONS (2)
  - DISORIENTATION [None]
  - HYPERSOMNIA [None]
